FAERS Safety Report 24202304 (Version 1)
Quarter: 2024Q3

REPORT INFORMATION
  Report Type: Spontaneous
  Country: CN (occurrence: CN)
  Receive Date: 20240812
  Receipt Date: 20240812
  Transmission Date: 20241016
  Serious: Yes (Life-Threatening)
  Sender: BEIGENE
  Company Number: CN-BEIGENE-BGN-2024-012515

PATIENT

DRUGS (3)
  1. TISLELIZUMAB [Suspect]
     Active Substance: TISLELIZUMAB
     Indication: Oesophageal neoplasm
     Dosage: 200 MILLIGRAM
     Route: 041
     Dates: start: 20240727
  2. NEDAPLATIN [Suspect]
     Active Substance: NEDAPLATIN
     Indication: Oesophageal neoplasm
     Dosage: 73 MILLIGRAM
     Route: 041
     Dates: start: 20240727
  3. PACLITAXEL [Suspect]
     Active Substance: PACLITAXEL
     Indication: Oesophageal neoplasm
     Dosage: 253 MILLIGRAM
     Route: 041
     Dates: start: 20240727

REACTIONS (2)
  - Drug-induced liver injury [Recovered/Resolved]
  - White blood cell count decreased [Recovered/Resolved]

NARRATIVE: CASE EVENT DATE: 20240728
